FAERS Safety Report 20995419 (Version 1)
Quarter: 2022Q2

REPORT INFORMATION
  Report Type: Report from Study
  Country: CO (occurrence: CO)
  Receive Date: 20220622
  Receipt Date: 20220622
  Transmission Date: 20220721
  Serious: Yes (Other)
  Sender: FDA-Public Use
  Company Number: CO-ABBVIE-22K-036-4440452-00

PATIENT
  Age: 64 Year
  Sex: Female
  Weight: 60 kg

DRUGS (1)
  1. HUMIRA [Suspect]
     Active Substance: ADALIMUMAB
     Indication: Hidradenitis
     Route: 058
     Dates: start: 20180922, end: 20220418

REACTIONS (9)
  - Head injury [Recovering/Resolving]
  - Fall [Recovering/Resolving]
  - Osteoarthritis [Recovering/Resolving]
  - Mobility decreased [Recovering/Resolving]
  - Joint injury [Recovering/Resolving]
  - Arthritis [Recovering/Resolving]
  - Joint range of motion decreased [Unknown]
  - Pain [Recovering/Resolving]
  - Musculoskeletal chest pain [Recovering/Resolving]

NARRATIVE: CASE EVENT DATE: 20220606
